FAERS Safety Report 5714974-X (Version None)
Quarter: 2008Q2

REPORT INFORMATION
  Report Type: 
  Country: None (occurrence: None)
  Receive Date: 20080423
  Receipt Date: 20080414
  Transmission Date: 20081010
  Serious: Yes (Other)
  Sender: FDA-Public Use
  Company Number: US-SANOFI-SYNTHELABO-A03200801084

PATIENT
  Sex: Male
  Weight: 86.2 kg

DRUGS (2)
  1. ASPIRIN [Suspect]
     Indication: DRUG USE FOR UNKNOWN INDICATION
     Route: 065
  2. PLAVIX [Suspect]
     Indication: DRUG USE FOR UNKNOWN INDICATION
     Route: 048
     Dates: start: 20070908

REACTIONS (11)
  - ANOREXIA [None]
  - ARTHRALGIA [None]
  - ASTHENIA [None]
  - CONSTIPATION [None]
  - CONTUSION [None]
  - FLANK PAIN [None]
  - FLATULENCE [None]
  - MYALGIA [None]
  - STOMACH DISCOMFORT [None]
  - URINARY TRACT DISORDER [None]
  - WEIGHT DECREASED [None]
